FAERS Safety Report 16762375 (Version 1)
Quarter: 2019Q3

REPORT INFORMATION
  Report Type: Spontaneous
  Country: CA (occurrence: CA)
  Receive Date: 20190831
  Receipt Date: 20190831
  Transmission Date: 20191005
  Serious: Yes (Disabling, Other)
  Sender: FDA-Public Use
  Company Number: CA-TEVA-2019-CA-1100350

PATIENT
  Age: 4 Year
  Sex: Female
  Weight: 15 kg

DRUGS (11)
  1. [PEG-L-ASPARAGINASE] [Concomitant]
  2. PEGASPARAGINASE [Concomitant]
     Active Substance: PEGASPARGASE
  3. DEXAMETHASONE. [Concomitant]
     Active Substance: DEXAMETHASONE
  4. CYTARABINE INJECTION [Concomitant]
     Active Substance: CYTARABINE
  5. DOXORUBICIN HYDROCHLORIDE INJECTION [Concomitant]
     Active Substance: DOXORUBICIN HYDROCHLORIDE
  6. VINCRISTINE SULFATE. [Suspect]
     Active Substance: VINCRISTINE SULFATE
     Indication: ACUTE LYMPHOCYTIC LEUKAEMIA
     Route: 042
  7. MERCAPTOPURINE. [Concomitant]
     Active Substance: MERCAPTOPURINE
  8. METHOTREXATE(MANUFACTURER UNKNOWN) [Concomitant]
     Active Substance: METHOTREXATE
  9. VINCRISTINE SULFATE. [Concomitant]
     Active Substance: VINCRISTINE SULFATE
  10. METHYLPREDNISOLONE NOS [Concomitant]
     Active Substance: METHYLPREDNISOLONE
  11. PREDNISONE. [Concomitant]
     Active Substance: PREDNISONE

REACTIONS (6)
  - Back pain [Unknown]
  - Gait disturbance [Unknown]
  - Neuropathy peripheral [Unknown]
  - Arthralgia [Unknown]
  - Pain in extremity [Unknown]
  - Fatigue [Unknown]
